FAERS Safety Report 15253358 (Version 10)
Quarter: 2020Q2

REPORT INFORMATION
  Report Type: Report from Study
  Country: US (occurrence: US)
  Receive Date: 20180807
  Receipt Date: 20200603
  Transmission Date: 20200713
  Serious: Yes (Hospitalization, Other)
  Sender: FDA-Public Use
  Company Number: PHEH2018US032595

PATIENT
  Age: 38 Year
  Sex: Male

DRUGS (3)
  1. GILENYA [Suspect]
     Active Substance: FINGOLIMOD HYDROCHLORIDE
     Dosage: 0.5 MG, QD
     Route: 048
     Dates: start: 20181205
  2. GILENYA [Suspect]
     Active Substance: FINGOLIMOD HYDROCHLORIDE
     Indication: MULTIPLE SCLEROSIS
     Dosage: 0.5 MG, QD
     Route: 048
     Dates: start: 201806
  3. GILENYA [Suspect]
     Active Substance: FINGOLIMOD HYDROCHLORIDE
     Dosage: 0.5 MG, QD
     Route: 048
     Dates: start: 20180601

REACTIONS (8)
  - Bradycardia [Not Recovered/Not Resolved]
  - Product dose omission [Unknown]
  - Procrastination [Unknown]
  - Memory impairment [Unknown]
  - Pancreatitis [Recovering/Resolving]
  - Heart rate decreased [Unknown]
  - Pain [Unknown]
  - Decreased appetite [Unknown]

NARRATIVE: CASE EVENT DATE: 20180615
